FAERS Safety Report 6226950-1 (Version None)
Quarter: 2009Q2

REPORT INFORMATION
  Report Type: 
  Country: None (occurrence: None)
  Receive Date: 20090610
  Receipt Date: 20090528
  Transmission Date: 20091009
  Serious: Yes (Other)
  Sender: FDA-Public Use
  Company Number: CHNY2009DE02214

PATIENT
  Sex: Male

DRUGS (1)
  1. NICOTINELL TTS             (NICOTINE) TRANS-THERAPEUTIC-SYSTEM [Suspect]
     Indication: SMOKING CESSATION THERAPY
     Dosage: 14 MG, QD, TRANSDERMAL
     Route: 062
     Dates: start: 20090501, end: 20090501

REACTIONS (3)
  - CARDIOVASCULAR DISORDER [None]
  - HEADACHE [None]
  - LOSS OF CONSCIOUSNESS [None]
